FAERS Safety Report 14332069 (Version 5)
Quarter: 2019Q1

REPORT INFORMATION
  Report Type: Spontaneous
  Country: DE (occurrence: DE)
  Receive Date: 20171228
  Receipt Date: 20190320
  Transmission Date: 20190417
  Serious: Yes (Death, Hospitalization)
  Sender: FDA-Public Use
  Company Number: DE-AUROBINDO-AUR-APL-2017-47223

PATIENT

DRUGS (58)
  1. HYDROMORPHONE [Suspect]
     Active Substance: HYDROMORPHONE
     Dosage: 4 MG, TID
     Route: 048
     Dates: start: 20180516
  2. METOCLOPRAMIDE. [Concomitant]
     Active Substance: METOCLOPRAMIDE
     Dosage: 5 MG, TID
     Route: 048
     Dates: start: 20180227, end: 20180227
  3. ZOFRAN [Concomitant]
     Active Substance: ONDANSETRON HYDROCHLORIDE
     Dosage: 8 MG, TID
     Route: 048
     Dates: start: 20180312
  4. DEXAMETHASONE. [Concomitant]
     Active Substance: DEXAMETHASONE
     Indication: INTRACRANIAL PRESSURE INCREASED
     Dosage: 4 MILLIGRAM, ONCE A DAY, 600 MG, QD
     Route: 048
     Dates: start: 20171129
  5. PREGABA [Concomitant]
     Dosage: 150 MILLIGRAM, ONCE A DAY, 150 MG, QD
     Route: 048
     Dates: start: 20171129
  6. PEMBROLIZUMAB. [Concomitant]
     Active Substance: PEMBROLIZUMAB
     Indication: MALIGNANT MELANOMA
     Dosage: 2 MILLIGRAM/KILOGRAM, ONCE A DAY
     Route: 048
     Dates: start: 20180517, end: 20181002
  7. TRAMETINIB [Suspect]
     Active Substance: TRAMETINIB
     Dosage: 2 MILLIGRAM, ONCE A DAY, 2 MG, QD
     Route: 048
     Dates: start: 20161123
  8. TILIDIN [Concomitant]
     Active Substance: NALOXONE HYDROCHLORIDE\TILIDINE HYDROCHLORIDE
     Indication: PRODUCT USED FOR UNKNOWN INDICATION
     Dosage: 50 MILLIGRAM, 50 MG, PRN
     Route: 048
     Dates: start: 20161115, end: 20170406
  9. DEXAMETHASONE. [Concomitant]
     Active Substance: DEXAMETHASONE
     Dosage: 4 MG, TID
     Route: 048
     Dates: start: 20180302, end: 20180303
  10. DEXAMETHASONE. [Concomitant]
     Active Substance: DEXAMETHASONE
     Dosage: 8 MG, QD
     Route: 042
     Dates: start: 20180225, end: 20180225
  11. BETAHISTIN [Concomitant]
     Active Substance: BETAHISTINE
     Indication: PRODUCT USED FOR UNKNOWN INDICATION
     Dosage: 6 MG, TID
     Route: 048
     Dates: start: 20180225, end: 20180225
  12. ZOFRAN [Concomitant]
     Active Substance: ONDANSETRON HYDROCHLORIDE
     Dosage: 4 MG, TID
     Route: 042
     Dates: start: 20180227, end: 20180302
  13. DEXAMETHASONE. [Concomitant]
     Active Substance: DEXAMETHASONE
     Dosage: 4 MG, BID
     Route: 048
     Dates: start: 20180304, end: 20180318
  14. PREGABA [Concomitant]
     Dosage: 100 MG, QD
     Route: 048
     Dates: start: 20180225
  15. BIFITERAL [Concomitant]
     Active Substance: LACTULOSE
     Indication: PRODUCT USED FOR UNKNOWN INDICATION
     Dosage: 10 GRAM, ONCE A DAY
     Route: 048
     Dates: start: 20180225, end: 20180225
  16. HYDROMORPHONE [Suspect]
     Active Substance: HYDROMORPHONE
     Indication: MALIGNANT MELANOMA
     Dosage: 12 MILLIGRAM, TWO TIMES A DAY, 4 MG, TID
     Route: 048
     Dates: start: 20170707
  17. HYDROMORPHONE [Suspect]
     Active Substance: HYDROMORPHONE
     Dosage: UNK
  18. TRAMETINIB [Suspect]
     Active Substance: TRAMETINIB
     Indication: METASTATIC MALIGNANT MELANOMA
     Dosage: 2 MILLIGRAM, ONCE A DAY, 2 MG, QD
     Route: 048
     Dates: start: 20161019, end: 20161114
  19. TAFINLAR [Suspect]
     Active Substance: DABRAFENIB MESYLATE
     Indication: METASTATIC MALIGNANT MELANOMA
     Dosage: 300 MILLIGRAM, TWO TIMES A DAY, 150 MG, BID
     Route: 048
     Dates: start: 20161117, end: 20180513
  20. ZOFRAN [Concomitant]
     Active Substance: ONDANSETRON HYDROCHLORIDE
     Indication: MALIGNANT MELANOMA
     Dosage: 16 MILLIGRAM, ONCE A DAY, 8 MG, BID
     Route: 048
     Dates: start: 20161115
  21. PREGABA [Concomitant]
     Dosage: 75 MILLIGRAM, ONCE A DAY, 75 MG, QD
     Route: 048
     Dates: start: 20170829, end: 20170905
  22. PREGABA [Concomitant]
     Dosage: 75 MG, BID
     Route: 048
     Dates: start: 20180225
  23. NIVOLUMAB BMS [Concomitant]
     Active Substance: NIVOLUMAB
     Indication: MALIGNANT MELANOMA
     Dosage: 1 MG/KG, Q3W
     Route: 042
     Dates: start: 20181024, end: 20181024
  24. ORTOTON [Concomitant]
     Indication: PRODUCT USED FOR UNKNOWN INDICATION
     Dosage: 750 MILLIGRAM, 750 MG, THREE TIMES AS NEEDED
     Route: 048
     Dates: start: 20180516
  25. BETAHISTIN [Concomitant]
     Active Substance: BETAHISTINE
     Dosage: 6 MG, TID
     Route: 048
     Dates: start: 20180226, end: 20180226
  26. TAFINLAR [Suspect]
     Active Substance: DABRAFENIB MESYLATE
     Dosage: 300 MILLIGRAM, ONCE A DAY, 150 MG, BID
     Route: 048
     Dates: start: 20161117
  27. CIPRALEX [Concomitant]
     Active Substance: ESCITALOPRAM OXALATE
     Indication: DEPRESSION
     Dosage: 10 MILLIGRAM, ONCE A DAY, 10 MG, QD
     Route: 048
     Dates: start: 20170518
  28. LAXOBERAL [Concomitant]
     Active Substance: SODIUM PICOSULFATE
     Indication: MALIGNANT MELANOMA
     Dosage: 20 DRP, PRN
     Route: 048
     Dates: start: 20180516
  29. DEXAMETHASONE. [Concomitant]
     Active Substance: DEXAMETHASONE
     Indication: MALIGNANT MELANOMA
     Dosage: 4 MILLIGRAM, ONCE A DAY, 4 MG, QD
     Route: 048
     Dates: start: 20170829
  30. HYDROMORPHONE [Suspect]
     Active Substance: HYDROMORPHONE
     Dosage: 8 MG, TID
     Route: 048
     Dates: start: 20180226
  31. TAFINLAR [Suspect]
     Active Substance: DABRAFENIB MESYLATE
     Dosage: 150 MG, BID
     Route: 048
     Dates: start: 20161019
  32. CIPRALEX [Concomitant]
     Active Substance: ESCITALOPRAM OXALATE
     Dosage: 10 MG, QD
     Route: 048
     Dates: start: 20180312
  33. METOCLOPRAMIDE. [Concomitant]
     Active Substance: METOCLOPRAMIDE
     Dosage: 10 MG, TID
     Dates: start: 20180228, end: 20180303
  34. DEXAMETHASONE. [Concomitant]
     Active Substance: DEXAMETHASONE
     Dosage: 20 MG, QD
     Route: 042
     Dates: start: 20180225, end: 20180225
  35. DEXAMETHASONE. [Concomitant]
     Active Substance: DEXAMETHASONE
     Dosage: 8 MG, TID
     Route: 042
     Dates: start: 20180226, end: 20180301
  36. PREGABA [Concomitant]
     Indication: DEPRESSED MOOD
     Dosage: 150 MILLIGRAM, ONCE A DAY, 75 MG, BID
     Route: 048
     Dates: start: 20170906
  37. PANTOPRAZOL [Concomitant]
     Active Substance: PANTOPRAZOLE SODIUM
     Indication: MALIGNANT MELANOMA
     Dosage: 40 MG, QD
     Route: 048
     Dates: start: 20170829
  38. CELEBREX [Concomitant]
     Active Substance: CELECOXIB
     Indication: PRODUCT USED FOR UNKNOWN INDICATION
     Dosage: 100 MILLIGRAM, ONCE A DAY
     Route: 048
     Dates: start: 20180302
  39. HYDROMORPHONE [Suspect]
     Active Substance: HYDROMORPHONE
     Dosage: 8 MG, QD
     Route: 048
     Dates: start: 20180225, end: 20180225
  40. TAFINLAR [Suspect]
     Active Substance: DABRAFENIB MESYLATE
     Dosage: 150 MG, BID
     Route: 048
     Dates: start: 20161123
  41. METOCLOPRAMIDE. [Concomitant]
     Active Substance: METOCLOPRAMIDE
     Indication: MALIGNANT MELANOMA
     Dosage: 10 MG, TWO TIMES A DAY
     Route: 048
     Dates: start: 20170118
  42. METOCLOPRAMIDE. [Concomitant]
     Active Substance: METOCLOPRAMIDE
     Indication: MALIGNANT MELANOMA
     Dosage: 300 MILLIGRAM, ONCE A DAY, 10MG, TID
     Route: 048
     Dates: start: 20170118
  43. ZOFRAN [Concomitant]
     Active Substance: ONDANSETRON HYDROCHLORIDE
     Dosage: 4 MG, QD
     Route: 048
     Dates: start: 20180303, end: 20180303
  44. LAXOBERAL [Concomitant]
     Active Substance: SODIUM PICOSULFATE
     Indication: MALIGNANT MELANOMA
     Dosage: , 20 DRP, QD20 GTT DROPS, ONCE A DAY
     Route: 048
     Dates: start: 20170407
  45. MOVICOL [Concomitant]
     Active Substance: POLYETHYLENE GLYCOL 3350\POTASSIUM CHLORIDE\SODIUM BICARBONATE\SODIUM CHLORIDE
     Indication: PRODUCT USED FOR UNKNOWN INDICATION
     Dosage: 13.81 GRAM, ONCE A DAY, 13.81 G, QD
     Route: 048
     Dates: start: 20170829, end: 20171128
  46. PANTOPRAZOL [Concomitant]
     Active Substance: PANTOPRAZOLE SODIUM
     Indication: MALIGNANT MELANOMA
  47. LAXANS [Concomitant]
     Indication: PRODUCT USED FOR UNKNOWN INDICATION
     Dosage: 15 DROP, ONCE A DAY
     Route: 048
     Dates: start: 20180225, end: 20180303
  48. HYDROMORPHONE [Suspect]
     Active Substance: HYDROMORPHONE
     Indication: MALIGNANT MELANOMA
     Dosage: 8 MILLIGRAM, ONCE A DAY, 4 MG, BID
     Route: 048
     Dates: start: 20170407
  49. TAFINLAR [Suspect]
     Active Substance: DABRAFENIB MESYLATE
     Indication: METASTATIC MALIGNANT MELANOMA
     Dosage: 300 MILLIGRAM, ONCE A DAY, 150 MG, BID
     Route: 048
     Dates: start: 20161019, end: 20161114
  50. IBUPROFEN. [Concomitant]
     Active Substance: IBUPROFEN
     Indication: MALIGNANT MELANOMA
     Dosage: 600 MILLIGRAM, ONCE A DAY, 600 MG, QD
     Route: 048
     Dates: start: 20170214, end: 20170406
  51. IBUPROFEN. [Concomitant]
     Active Substance: IBUPROFEN
     Indication: MALIGNANT MELANOMA
  52. PALLADON [Concomitant]
     Active Substance: HYDROMORPHONE
     Indication: MALIGNANT MELANOMA
     Dosage: 1.3 MILLIGRAM, 1.3 MG, PRN (UPTO QD AS NEEDED, 2 HOUR MINIMUM IN BETWEEN)
     Route: 048
     Dates: start: 20170407
  53. PALLADON [Concomitant]
     Active Substance: HYDROMORPHONE
     Indication: MALIGNANT MELANOMA
  54. ZOFRAN [Concomitant]
     Active Substance: ONDANSETRON HYDROCHLORIDE
     Indication: MALIGNANT MELANOMA
     Dosage: 8 MILLIGRAM, 8 MG, PRN
     Route: 048
     Dates: start: 20170308
  55. ZOFRAN [Concomitant]
     Active Substance: ONDANSETRON HYDROCHLORIDE
     Dosage: 4 MG, QD
     Route: 048
     Dates: start: 20180302, end: 20180302
  56. ZOFRAN [Concomitant]
     Active Substance: ONDANSETRON HYDROCHLORIDE
     Dosage: 4 MG, BID
     Route: 042
     Dates: start: 20180226, end: 20180226
  57. IPILIMUMAB [Concomitant]
     Active Substance: IPILIMUMAB
     Indication: MALIGNANT MELANOMA
     Dosage: 3 MILLIGRAM/KILOGRAM, 3 TIMES A WEEK
     Route: 042
     Dates: start: 20181024, end: 20181024
  58. ABSTRAL [Concomitant]
     Active Substance: FENTANYL CITRATE
     Indication: MALIGNANT MELANOMA
     Dosage: 800 MICROGRAM, ONCE A DAY
     Route: 048
     Dates: start: 20180516

REACTIONS (5)
  - Abdominal pain [Recovered/Resolved]
  - Metastatic malignant melanoma [Fatal]
  - Constipation [Unknown]
  - Intracranial pressure increased [Recovered/Resolved]
  - Malignant neoplasm progression [Fatal]

NARRATIVE: CASE EVENT DATE: 20170829
